FAERS Safety Report 16691129 (Version 8)
Quarter: 2021Q3

REPORT INFORMATION
  Report Type: Report from Study
  Country: None (occurrence: NL)
  Receive Date: 20190812
  Receipt Date: 20210721
  Transmission Date: 20211014
  Serious: Yes (Other)
  Sender: FDA-Public Use
  Company Number: NL-ABBVIE-19S-114-2755604-00

PATIENT
  Sex: Female
  Weight: 63 kg

DRUGS (15)
  1. DUODOPA [Suspect]
     Active Substance: CARBIDOPA\LEVODOPA
     Dosage: CD 2.3
     Route: 050
  2. SYMMETREL [Concomitant]
     Active Substance: AMANTADINE HYDROCHLORIDE
     Indication: PRODUCT USED FOR UNKNOWN INDICATION
  3. DUODOPA [Suspect]
     Active Substance: CARBIDOPA\LEVODOPA
     Indication: PARKINSON^S DISEASE
     Dosage: MD: 2.0ML; CD: 1.7 ML/H; ED: 1.6 ML, 16 HOUR ADMINISTRATION
     Route: 050
     Dates: start: 20190301
  4. DUODOPA [Suspect]
     Active Substance: CARBIDOPA\LEVODOPA
     Dosage: CD 2.1
     Route: 050
  5. DUODOPA [Suspect]
     Active Substance: CARBIDOPA\LEVODOPA
     Dosage: CD 1.9?MD 2.0 ML (NOT BEEN USED DUE TO COUNTERPRODUCTIVE EFFECT); CD 2.1 ML/HR; ED 2.0 ML
     Route: 050
  6. CLOZAPINE. [Concomitant]
     Active Substance: CLOZAPINE
     Indication: PRODUCT USED FOR UNKNOWN INDICATION
     Dates: start: 202011
  7. DUODOPA [Suspect]
     Active Substance: CARBIDOPA\LEVODOPA
     Dosage: MD: 2.1 ML, CD: 2.1 ML/H, ED: 1.6 ML
     Route: 050
  8. SIFROL [Concomitant]
     Active Substance: PRAMIPEXOLE
     Indication: PRODUCT USED FOR UNKNOWN INDICATION
     Dosage: DOSE INCREASED
  9. MAGNESIUM [Concomitant]
     Active Substance: MAGNESIUM
     Indication: PRODUCT USED FOR UNKNOWN INDICATION
     Dates: start: 2020
  10. DUODOPA [Suspect]
     Active Substance: CARBIDOPA\LEVODOPA
     Dosage: MD: 2.0, CD: 1.7, ED: 1.6
     Route: 050
  11. DUODOPA [Suspect]
     Active Substance: CARBIDOPA\LEVODOPA
     Dosage: MD 1.5, CD 2.5
     Route: 050
  12. DUODOPA [Suspect]
     Active Substance: CARBIDOPA\LEVODOPA
     Dosage: MD: 2.1 ML; CD: 1.9 ML/H; ED: 1.6 ML, REMAINS AT 16 HOURS
     Route: 050
  13. FRESUBIN [Concomitant]
     Active Substance: AMINO ACIDS\DEXTROSE\ELECTROLYTES NOS\SOYBEAN OIL\VITAMINS
     Indication: PRODUCT USED FOR UNKNOWN INDICATION
     Dosage: DOSE INCREASED
  14. DUODOPA [Suspect]
     Active Substance: CARBIDOPA\LEVODOPA
     Dosage: CD DECREASED TO 2.4
     Route: 050
  15. DUODOPA [Suspect]
     Active Substance: CARBIDOPA\LEVODOPA
     Dosage: MD: 2.1 ML, CD: 2.4 ML/H, ED: 1.6 ML
     Route: 050

REACTIONS (77)
  - Musculoskeletal stiffness [Not Recovered/Not Resolved]
  - Faeces soft [Recovered/Resolved]
  - Fungal infection [Unknown]
  - Nervousness [Not Recovered/Not Resolved]
  - Gastrointestinal disorder [Recovered/Resolved]
  - Underdose [Recovered/Resolved]
  - On and off phenomenon [Not Recovered/Not Resolved]
  - Vomiting [Not Recovered/Not Resolved]
  - Dyskinesia [Recovered/Resolved]
  - Constipation [Recovered/Resolved]
  - Fibroma [Recovered/Resolved]
  - Stoma site pain [Not Recovered/Not Resolved]
  - Depressed level of consciousness [Not Recovered/Not Resolved]
  - Emotional disorder [Not Recovered/Not Resolved]
  - Tension [Not Recovered/Not Resolved]
  - Medical device site exfoliation [Recovering/Resolving]
  - Medical device site fistula [Not Recovered/Not Resolved]
  - Tension [Recovered/Resolved]
  - Asthenia [Not Recovered/Not Resolved]
  - Dystonia [Not Recovered/Not Resolved]
  - Muscle spasms [Not Recovered/Not Resolved]
  - Fibroma [Not Recovered/Not Resolved]
  - Therapeutic product effect variable [Recovered/Resolved]
  - Gastrointestinal disorder [Recovered/Resolved]
  - Stoma site extravasation [Unknown]
  - Device leakage [Unknown]
  - Impaired quality of life [Not Recovered/Not Resolved]
  - Balance disorder [Not Recovered/Not Resolved]
  - Adverse drug reaction [Unknown]
  - Freezing phenomenon [Not Recovered/Not Resolved]
  - Loss of personal independence in daily activities [Not Recovered/Not Resolved]
  - Urinary tract infection [Unknown]
  - Device occlusion [Unknown]
  - Device kink [Unknown]
  - Gait disturbance [Recovering/Resolving]
  - Stoma site haemorrhage [Recovered/Resolved]
  - Therapeutic product effect incomplete [Unknown]
  - Stoma site pain [Unknown]
  - Device breakage [Unknown]
  - Screaming [Not Recovered/Not Resolved]
  - Frustration tolerance decreased [Not Recovered/Not Resolved]
  - Device dislocation [Unknown]
  - Inappropriate schedule of product administration [Recovered/Resolved]
  - Weight decreased [Recovered/Resolved]
  - Agitation [Unknown]
  - Stoma site discharge [Not Recovered/Not Resolved]
  - Bradykinesia [Not Recovered/Not Resolved]
  - Hallucination [Recovered/Resolved]
  - Unevaluable event [Unknown]
  - Stoma site erythema [Recovering/Resolving]
  - Dyskinesia [Unknown]
  - Device alarm issue [Unknown]
  - Muscle spasms [Unknown]
  - Stress [Not Recovered/Not Resolved]
  - Fungal infection [Not Recovered/Not Resolved]
  - Hyperkinesia [Recovered/Resolved]
  - Nausea [Not Recovered/Not Resolved]
  - Stoma site discharge [Recovered/Resolved]
  - Stoma site extravasation [Not Recovered/Not Resolved]
  - Abdominal pain [Not Recovered/Not Resolved]
  - Hallucination [Recovered/Resolved]
  - Speech disorder [Not Recovered/Not Resolved]
  - Acquired claw toe [Not Recovered/Not Resolved]
  - Feeling of despair [Not Recovered/Not Resolved]
  - Device difficult to use [Unknown]
  - Abnormal faeces [Recovered/Resolved]
  - Middle insomnia [Recovering/Resolving]
  - Fibroma [Unknown]
  - Injury [Unknown]
  - Fall [Not Recovered/Not Resolved]
  - Abnormal dreams [Unknown]
  - Anxiety [Unknown]
  - Overdose [Recovered/Resolved]
  - Muscle rigidity [Not Recovered/Not Resolved]
  - Stoma site pain [Recovered/Resolved]
  - Confusional state [Recovering/Resolving]
  - Device issue [Unknown]

NARRATIVE: CASE EVENT DATE: 2020
